FAERS Safety Report 15072594 (Version 1)
Quarter: 2018Q2

REPORT INFORMATION
  Report Type: Report from Study
  Country: None (occurrence: RO)
  Receive Date: 20180627
  Receipt Date: 20180627
  Transmission Date: 20180711
  Serious: Yes (Hospitalization, Other)
  Sender: FDA-Public Use
  Company Number: RO-ABBVIE-18S-135-2399263-00

PATIENT
  Age: 49 Year
  Sex: Male

DRUGS (5)
  1. EXVIERA [Suspect]
     Active Substance: DASABUVIR
     Indication: HEPATIC CIRRHOSIS
  2. MOTILIUM [Concomitant]
     Active Substance: DOMPERIDONE
     Indication: DYSPHAGIA
     Route: 048
  3. VIEKIRAX [Suspect]
     Active Substance: OMBITASVIR\PARITAPREVIR\RITONAVIR
     Indication: HEPATIC CIRRHOSIS
  4. VIEKIRAX [Suspect]
     Active Substance: OMBITASVIR\PARITAPREVIR\RITONAVIR
     Indication: HEPATITIS C
     Route: 048
     Dates: start: 20160712, end: 20161003
  5. EXVIERA [Suspect]
     Active Substance: DASABUVIR
     Indication: HEPATITIS C
     Route: 048
     Dates: start: 20160712, end: 20161003

REACTIONS (8)
  - Cerebrovascular accident [Recovered/Resolved with Sequelae]
  - Alanine aminotransferase increased [Not Recovered/Not Resolved]
  - Eye disorder [Recovering/Resolving]
  - Constipation [Not Recovered/Not Resolved]
  - Oral disorder [Recovering/Resolving]
  - Eye pain [Recovered/Resolved]
  - Abdominal pain [Not Recovered/Not Resolved]
  - Hepatitis B [Not Recovered/Not Resolved]

NARRATIVE: CASE EVENT DATE: 201610
